FAERS Safety Report 14300320 (Version 1)
Quarter: 2017Q4

REPORT INFORMATION
  Report Type: Spontaneous
  Country: US (occurrence: US)
  Receive Date: 20171219
  Receipt Date: 20171219
  Transmission Date: 20180321
  Serious: No
  Sender: FDA-Public Use
  Company Number: US-009507513-1712USA004076

PATIENT

DRUGS (2)
  1. INTRON A [Suspect]
     Active Substance: INTERFERON ALFA-2B
     Indication: BONE NEOPLASM
     Dosage: 18 MU, ONCE A DAY
     Route: 058
     Dates: start: 201711, end: 2017
  2. IBUPROFEN. [Concomitant]
     Active Substance: IBUPROFEN

REACTIONS (6)
  - Nausea [Recovering/Resolving]
  - Drug dose omission [Unknown]
  - Product use in unapproved indication [Unknown]
  - Full blood count abnormal [Recovering/Resolving]
  - Pain [Recovering/Resolving]
  - Fatigue [Recovering/Resolving]

NARRATIVE: CASE EVENT DATE: 2017
